FAERS Safety Report 16537899 (Version 1)
Quarter: 2019Q3

REPORT INFORMATION
  Report Type: Spontaneous
  Country: US (occurrence: US)
  Receive Date: 20190708
  Receipt Date: 20190708
  Transmission Date: 20191004
  Serious: Yes (Other)
  Sender: FDA-Public Use
  Company Number: US-SA-2019SA177825

PATIENT
  Sex: Female

DRUGS (1)
  1. LANTUS [Suspect]
     Active Substance: INSULIN GLARGINE
     Indication: DIABETES MELLITUS
     Dosage: SUPPOSED TO TAKES 6 UNITS, WHEN HER BLOOD SUGAR WAS GOING TOO HIGH SHE CAN JUST INJECT AND SHE START
     Route: 065

REACTIONS (8)
  - Product storage error [Unknown]
  - Intentional product use issue [Unknown]
  - Cataract [Unknown]
  - Blood glucose decreased [Unknown]
  - Sensory loss [Unknown]
  - Pain in extremity [Unknown]
  - Gastric bypass [Unknown]
  - Intentional overdose [Unknown]
